FAERS Safety Report 13376403 (Version 1)
Quarter: 2017Q1

REPORT INFORMATION
  Report Type: Spontaneous
  Country: US (occurrence: US)
  Receive Date: 20170328
  Receipt Date: 20170328
  Transmission Date: 20170429
  Serious: No
  Sender: FDA-Public Use
  Company Number: US-PFIZER INC-2017125607

PATIENT
  Age: 81 Year
  Sex: Female

DRUGS (1)
  1. COLESTIPOL HCL [Suspect]
     Active Substance: COLESTIPOL HYDROCHLORIDE
     Indication: DIARRHOEA
     Dosage: 5 MG, DAILY (ONE PACK MIXED WITH WATER OR JUICE DAILY)
     Route: 048

REACTIONS (1)
  - Drug ineffective for unapproved indication [Unknown]
